APPROVED DRUG PRODUCT: TRIAMCINOLONE ACETONIDE
Active Ingredient: TRIAMCINOLONE ACETONIDE
Strength: 0.025%
Dosage Form/Route: LOTION;TOPICAL
Application: A040467 | Product #001 | TE Code: AT
Applicant: FOUGERA PHARMACEUTICALS INC
Approved: Apr 21, 2003 | RLD: No | RS: No | Type: RX